FAERS Safety Report 9534341 (Version 7)
Quarter: 2014Q1

REPORT INFORMATION
  Report Type: Spontaneous
  Country: BR (occurrence: BR)
  Receive Date: 20130918
  Receipt Date: 20140328
  Transmission Date: 20141002
  Serious: Yes (Hospitalization)
  Sender: FDA-Public Use
  Company Number: BR-SANOFI-AVENTIS-FABR-1003491

PATIENT
  Age: 29 Year
  Sex: Female

DRUGS (2)
  1. FABRAZYME [Suspect]
     Indication: FABRY^S DISEASE
     Dosage: DOSE : 2 VIALS?1 MG/KG, Q2W
     Route: 042
     Dates: start: 20120508
  2. FABRAZYME [Suspect]
     Indication: FABRY^S DISEASE
     Route: 042

REACTIONS (10)
  - Hypertension [Unknown]
  - Hypertension [Not Recovered/Not Resolved]
  - Premature separation of placenta [Recovered/Resolved]
  - Exposure during pregnancy [Unknown]
  - Complication of pregnancy [Unknown]
  - False labour [Unknown]
  - Visual impairment [Unknown]
  - Skin discolouration [Unknown]
  - Blood pressure fluctuation [Unknown]
  - Malaise [Unknown]
